FAERS Safety Report 11868991 (Version 2)
Quarter: 2016Q1

REPORT INFORMATION
  Report Type: Report from Study
  Country: JP (occurrence: JP)
  Receive Date: 20151225
  Receipt Date: 20160219
  Transmission Date: 20160526
  Serious: Yes (Death, Other)
  Sender: FDA-Public Use
  Company Number: JP-BRISTOL-MYERS SQUIBB COMPANY-BMS-2015-033849

PATIENT
  Age: 92 Year
  Sex: Female
  Weight: 44 kg

DRUGS (1)
  1. APIXABAN [Suspect]
     Active Substance: APIXABAN
     Indication: CEREBROVASCULAR ACCIDENT PROPHYLAXIS
     Dosage: 2.5 MG, BID
     Route: 048
     Dates: start: 20140526, end: 20140616

REACTIONS (3)
  - Rash [Recovered/Resolved]
  - Lymphoma [Fatal]
  - Pleural effusion [Unknown]

NARRATIVE: CASE EVENT DATE: 20140604
